FAERS Safety Report 25279305 (Version 3)
Quarter: 2025Q2

REPORT INFORMATION
  Report Type: Spontaneous
  Country: PE (occurrence: PE)
  Receive Date: 20250507
  Receipt Date: 20250603
  Transmission Date: 20250717
  Serious: Yes (Death, Hospitalization)
  Sender: BIOMARIN
  Company Number: PE-SA-2025SA094910

PATIENT

DRUGS (1)
  1. LARONIDASE [Suspect]
     Active Substance: LARONIDASE
     Indication: Mucopolysaccharidosis I
     Dosage: 14.5 MG, QW
     Route: 041
     Dates: start: 20140621, end: 20231031

REACTIONS (9)
  - Mucopolysaccharidosis I [Fatal]
  - Condition aggravated [Fatal]
  - General physical health deterioration [Fatal]
  - Urinary tract infection [Recovered/Resolved]
  - Condition aggravated [Recovered/Resolved]
  - Bronchitis [Recovered/Resolved]
  - Condition aggravated [Recovered/Resolved]
  - Hepatomegaly [Recovered/Resolved]
  - Condition aggravated [Recovered/Resolved]

NARRATIVE: CASE EVENT DATE: 20231101
